FAERS Safety Report 7010771-6 (Version None)
Quarter: 2010Q3

REPORT INFORMATION
  Report Type: 
  Country: None (occurrence: None)
  Receive Date: 20100923
  Receipt Date: 20100917
  Transmission Date: 20110219
  Serious: No
  Sender: FDA-Public Use
  Company Number: US-PFIZER INC-2010077295

PATIENT
  Sex: Female

DRUGS (3)
  1. TIKOSYN [Suspect]
     Dosage: 0.25 MG, 2X/DAY
     Dates: start: 20100501
  2. ZETIA [Concomitant]
     Dosage: UNK
  3. ZOCOR [Concomitant]
     Dosage: UNK

REACTIONS (2)
  - ABDOMINAL DISTENSION [None]
  - ATRIAL FIBRILLATION [None]
